FAERS Safety Report 6811323-0 (Version None)
Quarter: 2010Q2

REPORT INFORMATION
  Report Type: 
  Country: None (occurrence: None)
  Receive Date: 20100629
  Receipt Date: 20100629
  Transmission Date: 20101027
  Serious: No
  Sender: FDA-Public Use
  Company Number: None

PATIENT
  Sex: Male
  Weight: 65.7716 kg

DRUGS (1)
  1. BUDEPRION XL 300 MG MANUFACTURER : TEVA USA [Suspect]
     Indication: DEPRESSION
     Dosage: 300 MG ONCE A DAY ORAL USED ABOUT 3 MONTHS I WAS HAPPY WITH IT - TO CAME NO WARNING!
     Route: 048

REACTIONS (3)
  - DYSTONIA [None]
  - OROMANDIBULAR DYSTONIA [None]
  - TARDIVE DYSKINESIA [None]
